FAERS Safety Report 12290589 (Version 4)
Quarter: 2016Q2

REPORT INFORMATION
  Report Type: Spontaneous
  Country: NL (occurrence: NL)
  Receive Date: 20160421
  Receipt Date: 20160623
  Transmission Date: 20160815
  Serious: Yes (Hospitalization, Other)
  Sender: FDA-Public Use
  Company Number: NL-TEVA-653521ISR

PATIENT
  Age: 45 Year
  Sex: Female

DRUGS (8)
  1. TRAMADOL 50 MG [Suspect]
     Active Substance: TRAMADOL
     Indication: SUICIDE ATTEMPT
  2. PARACETAMOL 500MG, CAFFEINE 50MG - TABLET [Concomitant]
     Active Substance: ACETAMINOPHEN\CAFFEINE
     Dosage: APPROXIMATELY TEN TABLETS
  3. VENLAFAXINE [Concomitant]
     Active Substance: VENLAFAXINE HYDROCHLORIDE
     Dosage: 150 MILLIGRAM DAILY;
  4. BISACODYL. [Concomitant]
     Active Substance: BISACODYL
     Indication: WEIGHT DECREASED
     Dosage: OVERUSED
  5. IRBESARTAN. [Concomitant]
     Active Substance: IRBESARTAN
     Dosage: 150 MILLIGRAM DAILY;
  6. XYLOMETAZOLINE [Concomitant]
     Active Substance: XYLOMETAZOLINE
     Dosage: 1 MILLIGRAM/MILLILITERS DAILY; 1 MG/ML ON DAILY BASIS
  7. PROMETHAZINE [Suspect]
     Active Substance: PROMETHAZINE\PROMETHAZINE HYDROCHLORIDE
     Indication: SUICIDE ATTEMPT
  8. OMEPRAZOLE. [Concomitant]
     Active Substance: OMEPRAZOLE
     Dosage: 20 MILLIGRAM DAILY;

REACTIONS (5)
  - Toxicity to various agents [Recovered/Resolved]
  - Anticholinergic syndrome [None]
  - Suicide attempt [None]
  - Poisoning [Recovered/Resolved]
  - Prescription drug used without a prescription [Unknown]

NARRATIVE: CASE EVENT DATE: 20141031
